FAERS Safety Report 21760498 (Version 3)
Quarter: 2023Q1

REPORT INFORMATION
  Report Type: Other
  Country: JP (occurrence: JP)
  Receive Date: 20221221
  Receipt Date: 20230324
  Transmission Date: 20230418
  Serious: Yes (Hospitalization, Other)
  Sender: FDA-Public Use
  Company Number: JP-ASTELLAS-2022JP017266

PATIENT
  Age: 85 Year
  Sex: Male
  Weight: 56.7 kg

DRUGS (9)
  1. PADCEV [Suspect]
     Active Substance: ENFORTUMAB VEDOTIN-EJFV
     Indication: Bladder cancer
     Dosage: 75 MG (1.25MG/KG), UNKNOWN FREQ.
     Route: 041
     Dates: start: 20220705, end: 20220719
  2. PADCEV [Suspect]
     Active Substance: ENFORTUMAB VEDOTIN-EJFV
     Indication: Metastases to lymph nodes
     Dosage: 75 MG (1.25MG/KG), UNKNOWN FREQ.
     Route: 041
     Dates: start: 20220809, end: 20220826
  3. PADCEV [Suspect]
     Active Substance: ENFORTUMAB VEDOTIN-EJFV
     Route: 041
     Dates: start: 20221006, end: 20221020
  4. PADCEV [Suspect]
     Active Substance: ENFORTUMAB VEDOTIN-EJFV
     Route: 041
     Dates: start: 20221110, end: 20221117
  5. NIFEDIPINE [Concomitant]
     Active Substance: NIFEDIPINE
     Indication: Hypertension
     Route: 048
  6. TELMISARTAN [Concomitant]
     Active Substance: TELMISARTAN
     Indication: Hypertension
     Route: 048
  7. AMLODIPINE [Concomitant]
     Active Substance: AMLODIPINE BESYLATE
     Indication: Hypertension
     Route: 048
  8. LEXAPRO [Concomitant]
     Active Substance: ESCITALOPRAM OXALATE
     Indication: Depression
     Route: 048
  9. MIRTAZAPINE [Concomitant]
     Active Substance: MIRTAZAPINE
     Indication: Depression
     Route: 048

REACTIONS (2)
  - Urinary retention [Not Recovered/Not Resolved]
  - Inappropriate schedule of product administration [Unknown]

NARRATIVE: CASE EVENT DATE: 20221121
